FAERS Safety Report 16819335 (Version 1)
Quarter: 2019Q3

REPORT INFORMATION
  Report Type: Spontaneous
  Country: US (occurrence: US)
  Receive Date: 20190917
  Receipt Date: 20190917
  Transmission Date: 20191005
  Serious: Yes (Hospitalization)
  Sender: FDA-Public Use
  Company Number: US-TEVA-2019-US-1107406

PATIENT
  Sex: Female

DRUGS (1)
  1. DESVENLAFAXINE SODIUM EXTENDED RELEASE [Suspect]
     Active Substance: DESVENLAFAXINE SUCCINATE
     Dosage: DOSE STRENGTH: 50

REACTIONS (1)
  - Suicidal ideation [Unknown]
